FAERS Safety Report 9222464 (Version 1)
Quarter: 2013Q2

REPORT INFORMATION
  Report Type: Spontaneous
  Country: US (occurrence: US)
  Receive Date: 20130410
  Receipt Date: 20130410
  Transmission Date: 20140414
  Serious: Yes (Other)
  Sender: FDA-Public Use
  Company Number: US-BAYER-2013-043299

PATIENT
  Age: 35 Year
  Sex: Female
  Weight: 106.58 kg

DRUGS (9)
  1. YASMIN [Suspect]
  2. WELLBUTRIN [Concomitant]
     Dosage: 150 MG, UNK
  3. HYDROCHLOROTHIAZIDE [Concomitant]
     Dosage: 12.5 MG, UNK
  4. LORATADIN [Concomitant]
  5. PERCOCET [Concomitant]
  6. IBUPROFEN [Concomitant]
     Dosage: 600 MG, 3 TIMES A DAY
  7. BENADRYL [Concomitant]
  8. ZANTAC [Concomitant]
  9. PRILOSEC [Concomitant]

REACTIONS (3)
  - Thrombophlebitis superficial [None]
  - Thrombosed varicose vein [None]
  - Cholecystitis chronic [None]
